FAERS Safety Report 7812620-2 (Version None)
Quarter: 2011Q4

REPORT INFORMATION
  Report Type: 
  Country: None (occurrence: None)
  Receive Date: 20111013
  Receipt Date: 20111003
  Transmission Date: 20120403
  Serious: Yes (Death, Hospitalization)
  Sender: FDA-Public Use
  Company Number: US-EISAI INC-E7389-01538-SPO-US

PATIENT
  Sex: Female
  Weight: 79 kg

DRUGS (12)
  1. HALAVEN [Suspect]
     Indication: BREAST CANCER
     Route: 041
     Dates: start: 20110401, end: 20110901
  2. MORPHINE [Concomitant]
  3. MAGNESIUM OXIDE [Concomitant]
  4. PROTONIX [Concomitant]
  5. METOPROLOL TARTRATE [Concomitant]
  6. METHYLPREDNISOLONE [Concomitant]
  7. ZITHROMAX [Concomitant]
  8. INSULIN [Concomitant]
  9. XOPENEX [Concomitant]
  10. CEFEPIME [Concomitant]
  11. HEPARIN [Concomitant]
  12. VANCOMYCIN HCL [Concomitant]

REACTIONS (3)
  - PULMONARY EMBOLISM [None]
  - ALVEOLITIS ALLERGIC [None]
  - DYSPNOEA [None]
